FAERS Safety Report 8896307 (Version 1)
Quarter: 2012Q4

REPORT INFORMATION
  Report Type: Spontaneous
  Country: US (occurrence: None)
  Receive Date: 20121106
  Receipt Date: 20121106
  Transmission Date: 20130627
  Serious: Yes (Hospitalization)
  Sender: FDA-Public Use
  Company Number: None

PATIENT
  Age: 63 Year
  Sex: Male
  Weight: 99.34 kg

DRUGS (2)
  1. TOBRAMYCIN [Suspect]
     Indication: POST PROCEDURAL INFECTION
     Dosage: 10.8g, continuous, bone cement
     Dates: start: 20121001
  2. VANCOMYCIN [Suspect]
     Indication: POST PROCEDURAL INFECTION
     Dosage: 9g, continuous, bone cement
     Dates: start: 20121001

REACTIONS (5)
  - Procedural hypotension [None]
  - Hypoxia [None]
  - Renal failure acute [None]
  - Renal tubular necrosis [None]
  - Antibiotic level above therapeutic [None]
